FAERS Safety Report 18971372 (Version 3)
Quarter: 2021Q2

REPORT INFORMATION
  Report Type: Spontaneous
  Country: JP (occurrence: JP)
  Receive Date: 20210305
  Receipt Date: 20210406
  Transmission Date: 20210717
  Serious: Yes (Hospitalization, Other)
  Sender: FDA-Public Use
  Company Number: JP-APOTEX-2021AP004832

PATIENT
  Age: 72 Year
  Sex: Female
  Weight: 41.1 kg

DRUGS (23)
  1. PAROXETINE HYDROCHLORIDE TABLET [Suspect]
     Active Substance: PAROXETINE HYDROCHLORIDE
     Indication: PRODUCT USED FOR UNKNOWN INDICATION
     Dosage: 10 MILLIGRAM
     Route: 048
  2. SYMPROIC [Concomitant]
     Active Substance: NALDEMEDINE
     Indication: CONSTIPATION
     Dosage: 0.2 MILLIGRAM, QD, IN THE EVENING
     Route: 048
  3. CELECOXIB. [Concomitant]
     Active Substance: CELECOXIB
     Indication: SPINAL COMPRESSION FRACTURE
     Dosage: 200 MILLIGRAM, BID, IN THE MORNING AND IN THE EVENING
     Route: 048
  4. ACETAMINOPHENE [Concomitant]
     Active Substance: ACETAMINOPHEN
     Indication: SPINAL COMPRESSION FRACTURE
     Dosage: UNK
     Route: 065
     Dates: start: 20210217
  5. CALONAL [Concomitant]
     Active Substance: ACETAMINOPHEN
     Indication: SPINAL COMPRESSION FRACTURE
     Dosage: 500 MILLIGRAM, QID, AFTER EVERY MEAL AND BEFORE BEDTIME
     Route: 048
     Dates: start: 20210218
  6. PAROXETINE HYDROCHLORIDE TABLET [Suspect]
     Active Substance: PAROXETINE HYDROCHLORIDE
     Dosage: UNK
     Route: 048
  7. ATORVASTATIN [Concomitant]
     Active Substance: ATORVASTATIN
     Indication: HYPERLIPIDAEMIA
     Dosage: 5 MILLIGRAM, QD, IN THE MORNING
     Route: 048
  8. DENOTAS [Concomitant]
     Active Substance: CALCIUM CARBONATE\CHOLECALCIFEROL\MAGNESIUM CARBONATE
     Indication: HYPOCALCAEMIA
     Dosage: UNK
     Route: 065
     Dates: start: 20210217
  9. FENTANYL CITRATE. [Concomitant]
     Active Substance: FENTANYL CITRATE
     Indication: SPINAL COMPRESSION FRACTURE
     Route: 050
     Dates: start: 20210218
  10. SERENACE [Concomitant]
     Active Substance: HALOPERIDOL
     Indication: SEROTONIN SYNDROME
     Dosage: 5 MG/A
     Route: 030
     Dates: start: 20210220, end: 20210220
  11. PAROXETINE. [Suspect]
     Active Substance: PAROXETINE
     Indication: PRODUCT USED FOR UNKNOWN INDICATION
     Dosage: UNK
     Route: 048
     Dates: end: 20210217
  12. PAROXETINE [PAROXETINE HYDROCHLORIDE] [Concomitant]
     Active Substance: PAROXETINE HYDROCHLORIDE
     Indication: PRODUCT USED FOR UNKNOWN INDICATION
     Dosage: UNK
     Route: 048
  13. OLOPATADINE HYDROCHLORIDE OD [Concomitant]
     Indication: PRODUCT USED FOR UNKNOWN INDICATION
     Dosage: 5 MILLIGRAM, BID, IN THE MORNING AND IN THE EVENING
     Route: 048
  14. BELSOMRA [Concomitant]
     Active Substance: SUVOREXANT
     Indication: INSOMNIA
     Dosage: 15 MILLIGRAM, QD, BEFORE BEDTIME
     Route: 048
     Dates: start: 20210217
  15. FENTOS [Concomitant]
     Active Substance: FENTANYL
     Indication: SPINAL COMPRESSION FRACTURE
     Dosage: UNK
     Route: 065
     Dates: start: 20210217
  16. FENTANYL CITRATE. [Concomitant]
     Active Substance: FENTANYL CITRATE
     Dosage: UNK, QD, 1 SHEET
     Route: 050
     Dates: start: 20210218
  17. OPSO [Concomitant]
     Active Substance: MORPHINE HYDROCHLORIDE
     Indication: SPINAL COMPRESSION FRACTURE
     Dosage: 5 MILLIGRAM
     Route: 048
  18. PAXIL CR [Suspect]
     Active Substance: PAROXETINE HYDROCHLORIDE
     Indication: PRODUCT USED FOR UNKNOWN INDICATION
     Dosage: 12.5 MILLIGRAM, QD, AFTER DINNER
     Route: 048
     Dates: start: 20210218, end: 20210221
  19. IRRADIATED RED BLOOD CELLS?LEUKOCYTES REDUCED [Concomitant]
     Active Substance: HUMAN RED BLOOD CELL
     Indication: MICROCYTIC ANAEMIA
     Dosage: UNK, 2 UNITS
     Route: 041
     Dates: start: 20210216, end: 20210216
  20. NEXIUM I.V. [Concomitant]
     Active Substance: ESOMEPRAZOLE SODIUM
     Indication: DUODENAL ULCER
     Dosage: 20 MILLIGRAM, QD, IN THE MORNING
     Route: 048
  21. HORIZON [Concomitant]
     Active Substance: DIAZEPAM
     Indication: SEROTONIN SYNDROME
     Dosage: 10 MG/A
     Route: 042
     Dates: start: 20210220, end: 20210220
  22. ASPARA?CA [Concomitant]
     Active Substance: CALCIUM ASPARTATE
     Indication: HYPOCALCAEMIA
     Dosage: 200 MILLIGRAM, QD, IN THE MORNING
     Route: 048
     Dates: start: 20210218
  23. LANDSEN [Concomitant]
     Active Substance: CLONAZEPAM
     Indication: SEROTONIN SYNDROME
     Dosage: 1 MILLIGRAM, QD, IN THE MORNING
     Route: 050
     Dates: start: 20210221

REACTIONS (9)
  - Restlessness [Unknown]
  - Pyrexia [Unknown]
  - Chills [Unknown]
  - Musculoskeletal stiffness [Recovering/Resolving]
  - Serotonin syndrome [Recovered/Resolved]
  - Agitation [Recovering/Resolving]
  - Irritability [Recovering/Resolving]
  - Hyperhidrosis [Recovering/Resolving]
  - Dyskinesia [Recovering/Resolving]

NARRATIVE: CASE EVENT DATE: 20201001
